FAERS Safety Report 5738029-3 (Version None)
Quarter: 2008Q2

REPORT INFORMATION
  Report Type: 
  Country: None (occurrence: None)
  Receive Date: 20080509
  Receipt Date: 20070405
  Transmission Date: 20081010
  Serious: Yes (Hospitalization)
  Sender: FDA-Public Use
  Company Number: 492553

PATIENT
  Sex: Female

DRUGS (1)
  1. FUZEON [Suspect]
     Indication: HIV INFECTION

REACTIONS (1)
  - PNEUMONIA [None]
